FAERS Safety Report 8616997-X (Version None)
Quarter: 2012Q3

REPORT INFORMATION
  Report Type: 
  Country: None (occurrence: None)
  Receive Date: 20120823
  Receipt Date: 20120814
  Transmission Date: 20120928
  Serious: Yes (Hospitalization, Other)
  Sender: FDA-Public Use
  Company Number: US-009507513-2011SP050836

PATIENT

DRUGS (1)
  1. NUVARING [Suspect]
     Indication: CONTRACEPTION
     Dates: start: 20090901, end: 20091101

REACTIONS (3)
  - PULMONARY EMBOLISM [None]
  - INFLUENZA [None]
  - CERVICAL DYSPLASIA [None]
